FAERS Safety Report 16365760 (Version 10)
Quarter: 2019Q2

REPORT INFORMATION
  Report Type: Report from Study
  Country: AU (occurrence: AU)
  Receive Date: 20190529
  Receipt Date: 20190628
  Transmission Date: 20190711
  Serious: Yes (Life-Threatening, Hospitalization)
  Sender: FDA-Public Use
  Company Number: AU-EISAI MEDICAL RESEARCH-EC-2019-056817

PATIENT
  Age: 79 Year
  Sex: Female
  Weight: 67.2 kg

DRUGS (11)
  1. ASPIRIN. [Concomitant]
     Active Substance: ASPIRIN
  2. LENVATINIB [Suspect]
     Active Substance: LENVATINIB
     Indication: MALIGNANT MELANOMA
     Route: 048
     Dates: start: 20190520, end: 20190523
  3. ZANIDIP [Concomitant]
     Active Substance: LERCANIDIPINE HYDROCHLORIDE
  4. APIXABAN [Concomitant]
     Active Substance: APIXABAN
     Dates: start: 20190520
  5. TRAJENTAMET [Concomitant]
     Active Substance: LINAGLIPTIN\METFORMIN HYDROCHLORIDE
  6. HYSONE [Concomitant]
  7. PEMBROLIZUMAB. [Suspect]
     Active Substance: PEMBROLIZUMAB
     Indication: MALIGNANT MELANOMA
     Route: 041
     Dates: start: 20190520, end: 20190520
  8. NEXIUM [Concomitant]
     Active Substance: ESOMEPRAZOLE MAGNESIUM
  9. CRESTOR [Concomitant]
     Active Substance: ROSUVASTATIN CALCIUM
  10. DIGOXIN. [Concomitant]
     Active Substance: DIGOXIN
  11. METOPROLOL. [Concomitant]
     Active Substance: METOPROLOL

REACTIONS (3)
  - Acute coronary syndrome [Recovered/Resolved]
  - Hypertension [Recovered/Resolved]
  - Cholecystitis chronic [Recovered/Resolved]

NARRATIVE: CASE EVENT DATE: 20190523
